FAERS Safety Report 13736155 (Version 1)
Quarter: 2017Q3

REPORT INFORMATION
  Report Type: Spontaneous
  Country: US (occurrence: US)
  Receive Date: 20170710
  Receipt Date: 20170710
  Transmission Date: 20171127
  Serious: No
  Sender: FDA-Public Use
  Company Number: US-BAYER-2017-131349

PATIENT
  Age: 82 Year
  Sex: Female
  Weight: 59 kg

DRUGS (3)
  1. HYDROXYZINE [Concomitant]
     Active Substance: HYDROXYZINE HYDROCHLORIDE
  2. CLARITIN [Suspect]
     Active Substance: LORATADINE
     Dosage: 1 DOSE
     Route: 048
     Dates: start: 20170705
  3. FUROSEMIDE. [Concomitant]
     Active Substance: FUROSEMIDE

REACTIONS (2)
  - Product use in unapproved indication [Unknown]
  - Off label use [Unknown]

NARRATIVE: CASE EVENT DATE: 20170705
